FAERS Safety Report 25496551 (Version 3)
Quarter: 2025Q3

REPORT INFORMATION
  Report Type: Report from Study
  Country: CA (occurrence: CA)
  Receive Date: 20250630
  Receipt Date: 20250905
  Transmission Date: 20251021
  Serious: Yes (Hospitalization, Other)
  Sender: JOHNSON AND JOHNSON
  Company Number: CA-JNJFOC-20250629512

PATIENT
  Age: 74 Year
  Sex: Female

DRUGS (1)
  1. TREMFYA [Suspect]
     Active Substance: GUSELKUMAB
     Indication: Psoriasis
     Route: 058
     Dates: start: 20250611

REACTIONS (9)
  - Intensive care [Unknown]
  - Pain [Unknown]
  - Wrist fracture [Unknown]
  - Back pain [Not Recovered/Not Resolved]
  - Flatulence [Unknown]
  - Swelling [Unknown]
  - Liver disorder [Unknown]
  - Eating disorder [Unknown]
  - Hepatic enzyme increased [Unknown]

NARRATIVE: CASE EVENT DATE: 20250601
